FAERS Safety Report 7623536-9 (Version None)
Quarter: 2011Q3

REPORT INFORMATION
  Report Type: 
  Country: None (occurrence: None)
  Receive Date: 20110720
  Receipt Date: 20110707
  Transmission Date: 20111222
  Serious: Yes (Other)
  Sender: FDA-Public Use
  Company Number: IT-ELI_LILLY_AND_COMPANY-IT201101004121

PATIENT
  Sex: Male

DRUGS (1)
  1. OLANZAPINE [Suspect]
     Indication: SCHIZOPHRENIA
     Dosage: 300 MG,EVERY TWO WEEKS
     Route: 030
     Dates: start: 20101019, end: 20101203

REACTIONS (3)
  - INJECTION SITE ABSCESS [None]
  - SKIN HYPERTROPHY [None]
  - INJECTION SITE ERYTHEMA [None]
